FAERS Safety Report 20490916 (Version 1)
Quarter: 2022Q1

REPORT INFORMATION
  Report Type: Spontaneous
  Country: MX (occurrence: MX)
  Receive Date: 20220218
  Receipt Date: 20220218
  Transmission Date: 20220423
  Serious: Yes (Other)
  Sender: FDA-Public Use
  Company Number: MX-AMGEN-MEXSP2022026748

PATIENT
  Age: 14 Year
  Sex: Male

DRUGS (7)
  1. FILGRASTIM [Suspect]
     Active Substance: FILGRASTIM
     Indication: Neutropenia
     Dosage: 300 MICROGRAM, QD (EVERY 24 HOURS FOR 7 DAYS)
     Route: 065
  2. CISPLATIN [Concomitant]
     Active Substance: CISPLATIN
     Indication: Osteosarcoma metastatic
     Dosage: UNK
  3. EPIRUBICIN [Concomitant]
     Active Substance: EPIRUBICIN
     Indication: Osteosarcoma metastatic
     Dosage: UNK
  4. CYCLOPHOSPHAMIDE [Concomitant]
     Active Substance: CYCLOPHOSPHAMIDE
     Indication: Osteosarcoma metastatic
     Dosage: UNK
  5. MESNA [Concomitant]
     Active Substance: MESNA
     Indication: Osteosarcoma metastatic
     Dosage: UNK
  6. PREDNISONE [Concomitant]
     Active Substance: PREDNISONE
     Indication: Osteosarcoma metastatic
     Dosage: UNK
  7. DEXAMETHASONE [Concomitant]
     Active Substance: DEXAMETHASONE
     Indication: Osteosarcoma metastatic
     Dosage: UNK

REACTIONS (3)
  - Folliculitis [Recovered/Resolved]
  - Malassezia infection [Recovered/Resolved]
  - Seborrhoeic dermatitis [Recovered/Resolved]
